FAERS Safety Report 4985187-4 (Version None)
Quarter: 2006Q2

REPORT INFORMATION
  Report Type: 
  Country: None (occurrence: None)
  Receive Date: 20060427
  Receipt Date: 20050914
  Transmission Date: 20061013
  Serious: Yes (Death)
  Sender: FDA-Public Use
  Company Number: US-MERCK-0509USA02221

PATIENT
  Age: 60 Year
  Sex: Male
  Weight: 91 kg

DRUGS (4)
  1. VIOXX [Suspect]
     Indication: JOINT SPRAIN
     Route: 048
     Dates: start: 20030201, end: 20030902
  2. CYCLOBENZAPRINE HYDROCHLORIDE [Concomitant]
     Route: 065
     Dates: start: 20021122, end: 20030801
  3. NAPROXEN [Concomitant]
     Route: 065
     Dates: start: 20021122, end: 20030828
  4. METHYLPREDNISOLONE [Concomitant]
     Route: 065

REACTIONS (5)
  - ARTERIOSCLEROSIS [None]
  - ARTHRALGIA [None]
  - DEATH [None]
  - DYSPEPSIA [None]
  - PAIN IN EXTREMITY [None]
